FAERS Safety Report 21593101 (Version 1)
Quarter: 2022Q4

REPORT INFORMATION
  Report Type: Spontaneous
  Country: US (occurrence: None)
  Receive Date: 20221111
  Receipt Date: 20221111
  Transmission Date: 20230112
  Serious: Yes (Hospitalization)
  Sender: FDA-Public Use
  Company Number: None

PATIENT
  Sex: Female

DRUGS (3)
  1. AMBRISENTAN [Suspect]
     Active Substance: AMBRISENTAN
     Indication: Pulmonary arterial hypertension
     Dosage: FREQUENCY : DAILY;?
     Route: 048
     Dates: start: 202210
  2. CEFUROXIME [Concomitant]
     Active Substance: CEFUROXIME
  3. FUROSEMIDE [Concomitant]

REACTIONS (4)
  - Pneumonia [None]
  - Peripheral swelling [None]
  - Joint swelling [None]
  - Joint swelling [None]

NARRATIVE: CASE EVENT DATE: 20221022
